FAERS Safety Report 23110849 (Version 1)
Quarter: 2023Q4

REPORT INFORMATION
  Report Type: Spontaneous
  Country: BG (occurrence: BG)
  Receive Date: 20231026
  Receipt Date: 20231026
  Transmission Date: 20240109
  Serious: Yes (Hospitalization, Other)
  Sender: FDA-Public Use
  Company Number: BG-CELLTRION HEALTHCARE HUNGARY KFT-2023BG019792

PATIENT
  Age: 45 Year

DRUGS (1)
  1. ADALIMUMAB [Suspect]
     Active Substance: ADALIMUMAB\ISOPROPYL ALCOHOL
     Indication: Hidradenitis
     Dosage: 40 MG, WEEKLY MONTHS

REACTIONS (2)
  - Drug ineffective [Unknown]
  - Disease progression [Recovering/Resolving]
